FAERS Safety Report 23849813 (Version 1)
Quarter: 2024Q2

REPORT INFORMATION
  Report Type: Spontaneous
  Country: BE (occurrence: BE)
  Receive Date: 20240513
  Receipt Date: 20240513
  Transmission Date: 20240716
  Serious: Yes (Death, Hospitalization, Other)
  Sender: FDA-Public Use
  Company Number: BE-FENNEC PHARMACEUTICALS, INC.-2024FEN00008

PATIENT
  Age: 71 Year
  Sex: Female

DRUGS (23)
  1. SODIUM THIOSULFATE [Suspect]
     Active Substance: SODIUM THIOSULFATE
     Indication: Calciphylaxis
     Dosage: 7.5 G, 2X/DAY
  2. SODIUM THIOSULFATE [Suspect]
     Active Substance: SODIUM THIOSULFATE
     Dosage: 15 G, 2X/DAY (IN 250 ML GLUCOSE 5% SOLUTION)
  3. COUMADIN [Suspect]
     Active Substance: WARFARIN SODIUM
     Indication: Atrial fibrillation
  4. ARANESP [Suspect]
     Active Substance: DARBEPOETIN ALFA
  5. MEDROL [Suspect]
     Active Substance: METHYLPREDNISOLONE
     Indication: Product used for unknown indication
  6. CALCIUM CARBONATE [Suspect]
     Active Substance: CALCIUM CARBONATE
     Indication: Product used for unknown indication
  7. PHENPROCOUMON [Suspect]
     Active Substance: PHENPROCOUMON
     Indication: Atrial fibrillation
  8. ZOCOR [Concomitant]
     Active Substance: SIMVASTATIN
  9. VITAMIN K [Concomitant]
     Active Substance: PHYTONADIONE
     Indication: Calciphylaxis
  10. PIPERACILLIN SODIUM\TAZOBACTAM SODIUM [Concomitant]
     Active Substance: PIPERACILLIN SODIUM\TAZOBACTAM SODIUM
     Indication: Antibiotic therapy
  11. BUMETANIDE [Concomitant]
     Active Substance: BUMETANIDE
  12. CINACALCET [Concomitant]
     Active Substance: CINACALCET
     Indication: Calciphylaxis
  13. CARBOXYMETHYLCELLULOSE SODIUM [Concomitant]
     Active Substance: CARBOXYMETHYLCELLULOSE SODIUM
     Indication: Calciphylaxis
  14. ALLOPURINOL [Concomitant]
     Active Substance: ALLOPURINOL
  15. OMEPRAZOLE [Concomitant]
     Active Substance: DONEPEZIL HYDROCHLORIDE\OMEPRAZOLE\OMEPRAZOLE MAGNESIUM
  16. ZESTRIL [Concomitant]
     Active Substance: LISINOPRIL
  17. LEVOTHYROXINE [Concomitant]
     Active Substance: LEVOTHYROXINE\LEVOTHYROXINE SODIUM
  18. HEPARIN [Concomitant]
     Active Substance: HEPARIN SODIUM
     Indication: Calciphylaxis
  19. MOLSIDOMINE [Concomitant]
     Active Substance: MOLSIDOMINE
  20. CYCLOSPORINE [Concomitant]
     Active Substance: CYCLOSPORINE
  21. LANOXIN [Concomitant]
     Active Substance: DIGOXIN
     Indication: Atrial fibrillation
  22. PAMIDRONATE DISODIUM [Concomitant]
     Active Substance: PAMIDRONATE DISODIUM
     Indication: Calciphylaxis
  23. CELLCEPT [Concomitant]
     Active Substance: MYCOPHENOLATE MOFETIL

REACTIONS (27)
  - Sepsis [Fatal]
  - Cutaneous calcification [Fatal]
  - Pulmonary calcification [Fatal]
  - Myocardial calcification [Fatal]
  - Arteriosclerosis [Unknown]
  - Mental status changes [Unknown]
  - Wound [Recovering/Resolving]
  - C-reactive protein increased [Unknown]
  - Wound secretion [Recovering/Resolving]
  - Staphylococcal infection [Unknown]
  - Ecchymosis [Unknown]
  - Skin necrosis [Recovering/Resolving]
  - Calciphylaxis [Fatal]
  - Blood calcium increased [Unknown]
  - Death [Fatal]
  - Hyperaesthesia [Unknown]
  - Hypernatraemia [Unknown]
  - Metabolic acidosis [Unknown]
  - Escherichia infection [Unknown]
  - Wound complication [Recovering/Resolving]
  - Nausea [Unknown]
  - Aortic arteriosclerosis [Unknown]
  - Vomiting [Unknown]
  - Skin lesion [Recovering/Resolving]
  - Blood parathyroid hormone increased [Unknown]
  - Proteus test positive [Unknown]
  - Infected skin ulcer [Unknown]
